FAERS Safety Report 7266269-3 (Version None)
Quarter: 2011Q1

REPORT INFORMATION
  Report Type: 
  Country: None (occurrence: None)
  Receive Date: 20110131
  Receipt Date: 20110120
  Transmission Date: 20110831
  Serious: Yes (Other)
  Sender: FDA-Public Use
  Company Number: US-PERRIGO-11US000517

PATIENT
  Age: 42 Year
  Sex: Male
  Weight: 113.38 kg

DRUGS (2)
  1. PHENOL 1.4% CHERRY 328 [Suspect]
     Indication: OROPHARYNGEAL PAIN
     Dosage: 5 SPRAYS, ONCE
     Route: 048
     Dates: start: 20110120, end: 20110120
  2. COUMADIN [Concomitant]
     Indication: CARDIAC DISORDER
     Dosage: UNK
     Route: 065

REACTIONS (7)
  - VOMITING [None]
  - ACCIDENTAL EXPOSURE [None]
  - COUGH [None]
  - PAIN [None]
  - DYSPNOEA [None]
  - ASTHMA [None]
  - DIZZINESS [None]
